FAERS Safety Report 5077734-1 (Version None)
Quarter: 2006Q3

REPORT INFORMATION
  Report Type: 
  Country: None (occurrence: None)
  Receive Date: 20060810
  Receipt Date: 20060111
  Transmission Date: 20061208
  Serious: Yes (Hospitalization)
  Sender: FDA-Public Use
  Company Number: NL-ABBOTT-06P-114-0321711-00

PATIENT
  Sex: Male
  Weight: 61 kg

DRUGS (10)
  1. KALETRA [Suspect]
     Indication: HIV TEST POSITIVE
     Dosage: 533MG/133MG
     Dates: start: 20030804, end: 20031116
  2. KALETRA [Suspect]
     Dosage: 560MG/140MG
     Dates: start: 20031117
  3. LAMIVUDINE + ZIDOVUDINE [Concomitant]
     Indication: DRUG USE FOR UNKNOWN INDICATION
  4. NVP [Concomitant]
     Indication: DRUG USE FOR UNKNOWN INDICATION
  5. EFZ [Concomitant]
     Indication: DRUG USE FOR UNKNOWN INDICATION
  6. NUCONAZOL CREME [Concomitant]
     Indication: DRUG USE FOR UNKNOWN INDICATION
     Route: 061
     Dates: start: 20051212, end: 20051222
  7. SUMATRIPTAN SUCCINATE [Concomitant]
     Indication: DRUG USE FOR UNKNOWN INDICATION
     Dates: start: 20040706, end: 20040731
  8. DIAZEPAM [Concomitant]
     Indication: DRUG USE FOR UNKNOWN INDICATION
     Dates: start: 20040706, end: 20040731
  9. AC COD [Concomitant]
     Indication: DRUG USE FOR UNKNOWN INDICATION
     Dates: start: 20040706, end: 20040731
  10. HYDROCORTISONE [Concomitant]
     Indication: DRUG USE FOR UNKNOWN INDICATION
     Dates: start: 20041213, end: 20050130

REACTIONS (4)
  - BLOOD DISORDER [None]
  - HERPES ZOSTER [None]
  - SKIN INFECTION [None]
  - VIRAL INFECTION [None]
